FAERS Safety Report 8093854-1 (Version None)
Quarter: 2012Q1

REPORT INFORMATION
  Report Type: 
  Country: None (occurrence: None)
  Receive Date: 20120129
  Receipt Date: 20110920
  Transmission Date: 20120608
  Serious: Yes (Other)
  Sender: FDA-Public Use
  Company Number: US-ABBOTT-11P-163-0854370-00

PATIENT
  Sex: Female
  Weight: 120.31 kg

DRUGS (4)
  1. ATENOLOL [Concomitant]
     Indication: HYPERTENSION
  2. SIMVASTATIN [Concomitant]
     Indication: BLOOD CHOLESTEROL INCREASED
  3. METFORMIN HCL [Concomitant]
     Indication: GLUCOSE TOLERANCE IMPAIRED
  4. HUMIRA [Suspect]
     Indication: RHEUMATOID ARTHRITIS
     Dates: start: 20090901

REACTIONS (5)
  - DIARRHOEA [None]
  - BACK PAIN [None]
  - NEUROPATHY PERIPHERAL [None]
  - CHOLELITHIASIS [None]
  - ROAD TRAFFIC ACCIDENT [None]
